FAERS Safety Report 9049761 (Version 1)
Quarter: 2013Q1

REPORT INFORMATION
  Report Type: Spontaneous
  Country: CN (occurrence: CN)
  Receive Date: 20130205
  Receipt Date: 20130205
  Transmission Date: 20140127
  Serious: Yes (Other)
  Sender: FDA-Public Use
  Company Number: CN-ROCHE-1099379

PATIENT
  Age: 61 Year
  Sex: Male

DRUGS (3)
  1. PEGASYS [Suspect]
     Indication: HEPATITIS C
     Route: 065
  2. RIBAVIRIN (NON-ROCHE/NON-COMPARATOR) [Concomitant]
     Indication: HEPATITIS C
  3. RHUBARB [Concomitant]

REACTIONS (5)
  - Hepatitis C [Recovered/Resolved]
  - Liver induration [Not Recovered/Not Resolved]
  - Drug ineffective [Unknown]
  - Renal cyst [Unknown]
  - Liver injury [Unknown]
